FAERS Safety Report 16947832 (Version 6)
Quarter: 2019Q4

REPORT INFORMATION
  Report Type: Report from Study
  Country: CA (occurrence: CA)
  Receive Date: 20191022
  Receipt Date: 20191219
  Transmission Date: 20200122
  Serious: Yes (Hospitalization, Other)
  Sender: FDA-Public Use
  Company Number: CA-BEH-2019108261

PATIENT
  Age: 81 Year
  Sex: Female

DRUGS (8)
  1. HAEMATE P [Suspect]
     Active Substance: ANTIHEMOPHILIC FACTOR HUMAN
     Indication: PROPHYLAXIS
     Dosage: 5200 INTERNATIONAL UNIT
     Route: 042
  2. HAEMATE P [Suspect]
     Active Substance: ANTIHEMOPHILIC FACTOR HUMAN
     Indication: ACQUIRED VON WILLEBRAND^S DISEASE
     Dosage: 100 INTERNATIONAL UNIT/KILOGRAM, QD
     Route: 042
  3. HAEMATE P [Suspect]
     Active Substance: ANTIHEMOPHILIC FACTOR HUMAN
     Indication: ACQUIRED VON WILLEBRAND^S DISEASE
     Dosage: 100 INTERNATIONAL UNIT/KILOGRAM, QD
     Route: 042
  4. HAEMATE P [Suspect]
     Active Substance: ANTIHEMOPHILIC FACTOR HUMAN
     Indication: ACQUIRED VON WILLEBRAND^S DISEASE
     Dosage: 3900 RCOF, QOD
     Route: 058
  5. HAEMATE P [Suspect]
     Active Substance: ANTIHEMOPHILIC FACTOR HUMAN
     Indication: ACQUIRED VON WILLEBRAND^S DISEASE
     Dosage: 3900 RCOF, QOD
     Route: 058
  6. HAEMATE P [Suspect]
     Active Substance: ANTIHEMOPHILIC FACTOR HUMAN
     Dosage: 6200 INTERNATIONAL UNIT, QD
     Route: 042
  7. HAEMATE P [Suspect]
     Active Substance: ANTIHEMOPHILIC FACTOR HUMAN
     Dosage: 6200 INTERNATIONAL UNIT, QD
     Route: 042
  8. HAEMATE P [Suspect]
     Active Substance: ANTIHEMOPHILIC FACTOR HUMAN
     Indication: PROPHYLAXIS
     Dosage: 5200 INTERNATIONAL UNIT
     Route: 042

REACTIONS (10)
  - Gastrointestinal haemorrhage [Not Recovered/Not Resolved]
  - Anaemia [Not Recovered/Not Resolved]
  - Epistaxis [Recovered/Resolved]
  - Haemoglobin decreased [Recovered/Resolved with Sequelae]
  - Capillary fragility [Not Recovered/Not Resolved]
  - No adverse event [Unknown]
  - Haemoglobin decreased [Not Recovered/Not Resolved]
  - Incorrect route of product administration [Unknown]
  - Myelofibrosis [Not Recovered/Not Resolved]
  - Unevaluable event [Not Recovered/Not Resolved]

NARRATIVE: CASE EVENT DATE: 2019
